FAERS Safety Report 6489910-1 (Version None)
Quarter: 2009Q4

REPORT INFORMATION
  Report Type: 
  Country: None (occurrence: None)
  Receive Date: 20091211
  Receipt Date: 20091201
  Transmission Date: 20100525
  Serious: Yes (Other)
  Sender: FDA-Public Use
  Company Number: US-JNJFOC-20091201579

PATIENT
  Age: 45 Year
  Sex: Male
  Weight: 62.14 kg

DRUGS (4)
  1. RISPERDAL CONSTA [Suspect]
     Route: 030
  2. RISPERDAL CONSTA [Suspect]
     Indication: ABNORMAL BEHAVIOUR
     Route: 030
  3. CLOZARIL [Concomitant]
     Indication: ABNORMAL BEHAVIOUR
     Route: 065
  4. SYNTHROID [Concomitant]
     Indication: HYPOTHYROIDISM
     Route: 065

REACTIONS (18)
  - ABDOMINAL PAIN UPPER [None]
  - ABNORMAL BEHAVIOUR [None]
  - CHEST PAIN [None]
  - DECREASED APPETITE [None]
  - DISTURBANCE IN ATTENTION [None]
  - DIZZINESS [None]
  - DRY MOUTH [None]
  - EAR PAIN [None]
  - EYE PAIN [None]
  - FATIGUE [None]
  - HALLUCINATION [None]
  - INCORRECT DOSE ADMINISTERED [None]
  - INJECTION SITE PAIN [None]
  - MUSCULOSKELETAL PAIN [None]
  - MUSCULOSKELETAL STIFFNESS [None]
  - PAIN IN EXTREMITY [None]
  - SLUGGISHNESS [None]
  - TREATMENT NONCOMPLIANCE [None]
